FAERS Safety Report 21159454 (Version 3)
Quarter: 2022Q3

REPORT INFORMATION
  Report Type: Spontaneous
  Country: US (occurrence: US)
  Receive Date: 20220802
  Receipt Date: 20220922
  Transmission Date: 20221027
  Serious: Yes (Hospitalization, Other)
  Sender: FDA-Public Use
  Company Number: US-BRISTOL-MYERS SQUIBB COMPANY-2022-082346

PATIENT
  Age: 76 Year
  Sex: Female

DRUGS (3)
  1. REVLIMID [Suspect]
     Active Substance: LENALIDOMIDE
     Indication: Product used for unknown indication
     Dosage: TAKE 1 CAPSULE (10MG TOTAL) BY MOUTH EVERY MORNING FOR 21 DAYS THEN REST 7 DAYS
     Route: 048
     Dates: start: 20210101
  2. REVLIMID [Suspect]
     Active Substance: LENALIDOMIDE
     Route: 048
     Dates: start: 20210121
  3. BACTRIM [Suspect]
     Active Substance: SULFAMETHOXAZOLE\TRIMETHOPRIM
     Indication: Localised infection
     Route: 065

REACTIONS (3)
  - Localised infection [Recovered/Resolved]
  - Rash [Recovered/Resolved]
  - Subcutaneous abscess [Recovered/Resolved]
